FAERS Safety Report 23914786 (Version 1)
Quarter: 2024Q2

REPORT INFORMATION
  Report Type: Spontaneous
  Country: CA (occurrence: CA)
  Receive Date: 20240529
  Receipt Date: 20240529
  Transmission Date: 20240716
  Serious: Yes (Other)
  Sender: FDA-Public Use
  Company Number: CA-PFIZER INC-202400179641

PATIENT
  Age: 70 Year
  Sex: Female

DRUGS (2)
  1. RUXIENCE [Suspect]
     Active Substance: RITUXIMAB-PVVR
     Indication: Granulomatosis with polyangiitis
     Dosage: 1 DF, (375MG/M2) WEEKLY FOR 4 DOSES
     Route: 042
     Dates: start: 20231124, end: 20231214
  2. RUXIENCE [Suspect]
     Active Substance: RITUXIMAB-PVVR
     Dosage: 1 DF, (375MG/M2) WEEKLY FOR 4 DOSES
     Route: 042
     Dates: start: 20231214

REACTIONS (1)
  - Knee operation [Not Recovered/Not Resolved]
